FAERS Safety Report 9419502 (Version 1)
Quarter: 2013Q3

REPORT INFORMATION
  Report Type: Spontaneous
  Country: SE (occurrence: SE)
  Receive Date: 20130725
  Receipt Date: 20130725
  Transmission Date: 20140515
  Serious: Yes (Life-Threatening)
  Sender: FDA-Public Use
  Company Number: SE-009507513-1307SWE007987

PATIENT
  Age: 71 Year
  Sex: Female

DRUGS (2)
  1. TRUSOPT [Suspect]
     Dosage: TOTAL DAILY DOSE 20 MG
     Route: 047
     Dates: start: 20130603, end: 20130618
  2. COSOPT [Suspect]
     Dosage: TOTAL DAILY DOSE: 20MG/5MG
     Route: 047
     Dates: start: 20130302, end: 20130327

REACTIONS (5)
  - Hypertension [Unknown]
  - Hypoaesthesia [Unknown]
  - Headache [Unknown]
  - Eye pain [Unknown]
  - Dyspnoea [Unknown]
